FAERS Safety Report 4689934-0 (Version None)
Quarter: 2005Q2

REPORT INFORMATION
  Report Type: 
  Country: None (occurrence: None)
  Receive Date: 20050608
  Receipt Date: 20050203
  Transmission Date: 20051028
  Serious: No
  Sender: FDA-Public Use
  Company Number: 2005-BP-01801BP

PATIENT
  Sex: Female

DRUGS (3)
  1. SPIRIVA [Suspect]
     Indication: ASTHMA
     Dosage: NR (18 MCG), NR
     Dates: start: 20041101, end: 20050202
  2. COMBIVENT [Suspect]
     Dosage: NR (NR), IH
     Route: 055
  3. FLOVENT [Concomitant]

REACTIONS (4)
  - COUGH [None]
  - DRY MOUTH [None]
  - THROAT IRRITATION [None]
  - TONGUE DRY [None]
